FAERS Safety Report 15026763 (Version 1)
Quarter: 2018Q2

REPORT INFORMATION
  Report Type: Spontaneous
  Country: SG (occurrence: SG)
  Receive Date: 20180618
  Receipt Date: 20180618
  Transmission Date: 20180711
  Serious: Yes (Other)
  Sender: FDA-Public Use
  Company Number: SG-BAXTER-2018BAX017354

PATIENT
  Age: 60 Year
  Sex: Female

DRUGS (11)
  1. SUPRANE [Suspect]
     Active Substance: DESFLURANE
     Dosage: 5.4% TO 8.5%?3.5 HOURS AFTER INDUCTION.
     Route: 055
  2. SUPRANE [Suspect]
     Active Substance: DESFLURANE
     Route: 055
  3. SUPRANE [Suspect]
     Active Substance: DESFLURANE
     Dosage: SECOND ALADIN2 CASSETTE
     Route: 055
  4. PROPOFOL. [Concomitant]
     Active Substance: PROPOFOL
     Indication: INDUCTION OF ANAESTHESIA
     Route: 065
  5. ROPIVACAINE [Concomitant]
     Active Substance: ROPIVACAINE
     Indication: NERVE BLOCK
     Dosage: 25 ML TO EACH SIDE
     Route: 065
  6. SEVOFLURANE. [Concomitant]
     Active Substance: SEVOFLURANE
     Indication: INDUCTION OF ANAESTHESIA
     Route: 065
  7. REMIFENTANIL [Concomitant]
     Active Substance: REMIFENTANIL
     Indication: INDUCTION OF ANAESTHESIA
     Dosage: TARGET CONTROLLED INFUSION
     Route: 041
  8. SUPRANE [Suspect]
     Active Substance: DESFLURANE
     Indication: MAINTENANCE OF ANAESTHESIA
     Dosage: 5.7% TO 5.8%
     Route: 055
  9. SUPRANE [Suspect]
     Active Substance: DESFLURANE
     Route: 055
  10. ATRACURIUM [Concomitant]
     Active Substance: ATRACURIUM
     Indication: INDUCTION OF ANAESTHESIA
     Route: 042
  11. MIDAZOLAM [Concomitant]
     Active Substance: MIDAZOLAM HYDROCHLORIDE
     Indication: INDUCTION OF ANAESTHESIA
     Route: 042

REACTIONS (4)
  - Incorrect dose administered [Unknown]
  - Tachycardia [Recovered/Resolved]
  - Device issue [Unknown]
  - Hypotension [Recovered/Resolved]
